FAERS Safety Report 13394561 (Version 1)
Quarter: 2017Q2

REPORT INFORMATION
  Report Type: Spontaneous
  Country: US (occurrence: US)
  Receive Date: 20170403
  Receipt Date: 20170403
  Transmission Date: 20170830
  Serious: Yes (Death)
  Sender: FDA-Public Use
  Company Number: US-BAXTER-2017BAX014306

PATIENT
  Sex: Female

DRUGS (3)
  1. PHOXILLUM BK4/2.5 [Suspect]
     Active Substance: CALCIUM CL\MAGNESIUM CL\POTASSIUM CL\SODIUM BICAR\SODIUM CL\SODIUM PHOSPHATE,DIB
     Indication: RENAL REPLACEMENT THERAPY
     Dosage: PRESCRIBED AT 28 ML/KG/HR
     Route: 010
     Dates: start: 20170305
  2. PHOXILLUM BK4/2.5 [Suspect]
     Active Substance: CALCIUM CL\MAGNESIUM CL\POTASSIUM CL\SODIUM BICAR\SODIUM CL\SODIUM PHOSPHATE,DIB
     Dosage: PRESCRIBED AT 3 ML/KG/HR
     Route: 010
     Dates: start: 20170305
  3. TPN [Suspect]
     Active Substance: AMINO ACIDS\DEXTROSE\ELECTROLYTES NOS\SOYBEAN OIL
     Indication: PARENTERAL NUTRITION
     Dosage: WITH 15 MMOL OF PHOSPHATE CONTINUOUSLY
     Route: 065
     Dates: start: 20170304

REACTIONS (3)
  - Blood phosphorus increased [Unknown]
  - Death [Fatal]
  - Malaise [Unknown]

NARRATIVE: CASE EVENT DATE: 201703
